FAERS Safety Report 10176115 (Version 1)
Quarter: 2014Q2

REPORT INFORMATION
  Report Type: Spontaneous
  Country: US (occurrence: US)
  Receive Date: 20140516
  Receipt Date: 20140516
  Transmission Date: 20141212
  Serious: Yes (Other)
  Sender: FDA-Public Use
  Company Number: US-ELI_LILLY_AND_COMPANY-US201405001859

PATIENT
  Age: 79 Year
  Sex: Female

DRUGS (9)
  1. EVISTA [Suspect]
     Indication: BONE DISORDER
     Dosage: UNK, QD
     Route: 065
  2. BABY ASPIRIN [Concomitant]
     Dosage: UNK, UNKNOWN
     Route: 065
  3. SYNTHROID [Concomitant]
     Dosage: UNK, EACH MORNING
  4. ATENOLOL [Concomitant]
     Dosage: UNK, UNKNOWN
     Route: 065
  5. PROTONIX [Concomitant]
     Dosage: UNK, UNKNOWN
     Route: 065
  6. CALCIUM [Concomitant]
     Dosage: UNK, UNKNOWN
     Route: 065
  7. VITAMINS                           /90003601/ [Concomitant]
     Dosage: UNK, UNKNOWN
     Route: 065
  8. LISINOPRIL [Concomitant]
     Dosage: UNK, EACH EVENING
     Route: 065
  9. LIPITOR [Concomitant]
     Dosage: 20 MG, UNKNOWN
     Route: 065

REACTIONS (5)
  - Myocardial infarction [Unknown]
  - Hypertension [Unknown]
  - Blood cholesterol increased [Unknown]
  - Gastrooesophageal reflux disease [Unknown]
  - Fall [Unknown]
